FAERS Safety Report 10270761 (Version 3)
Quarter: 2015Q3

REPORT INFORMATION
  Report Type: Spontaneous
  Country: US (occurrence: US)
  Receive Date: 20140701
  Receipt Date: 20150817
  Transmission Date: 20151125
  Serious: No
  Sender: FDA-Public Use
  Company Number: US-GILEAD-2014-0106705

PATIENT
  Age: 55 Year
  Sex: Female

DRUGS (4)
  1. LETAIRIS [Suspect]
     Active Substance: AMBRISENTAN
     Indication: SYSTEMIC LUPUS ERYTHEMATOSUS
  2. REMODULIN [Concomitant]
     Active Substance: TREPROSTINIL
  3. LETAIRIS [Suspect]
     Active Substance: AMBRISENTAN
     Indication: PULMONARY HYPERTENSION
     Dosage: 10 MG, QD
     Route: 065
     Dates: start: 20110726
  4. LETAIRIS [Suspect]
     Active Substance: AMBRISENTAN
     Indication: CARDIOVASCULAR DISORDER

REACTIONS (4)
  - Swelling [Unknown]
  - Nausea [Unknown]
  - Erythema [Unknown]
  - Headache [Unknown]
